APPROVED DRUG PRODUCT: CENTANY
Active Ingredient: MUPIROCIN
Strength: 2%
Dosage Form/Route: OINTMENT;TOPICAL
Application: N050788 | Product #001 | TE Code: BX
Applicant: PADAGIS US LLC
Approved: Dec 4, 2002 | RLD: No | RS: No | Type: RX